FAERS Safety Report 13694899 (Version 1)
Quarter: 2017Q2

REPORT INFORMATION
  Report Type: Spontaneous
  Country: US (occurrence: US)
  Receive Date: 20170627
  Receipt Date: 20170627
  Transmission Date: 20170830
  Serious: Yes (Hospitalization, Other)
  Sender: FDA-Public Use
  Company Number: US-VIFOR (INTERNATIONAL) INC.-VIT-2017-00276

PATIENT
  Sex: Female
  Weight: 75.82 kg

DRUGS (1)
  1. VELTASSA [Suspect]
     Active Substance: PATIROMER
     Indication: BLOOD POTASSIUM INCREASED
     Route: 048
     Dates: start: 20160714, end: 201610

REACTIONS (14)
  - Fall [Unknown]
  - Complication associated with device [Unknown]
  - Cough [Unknown]
  - Ear haemorrhage [Unknown]
  - Spinal fusion surgery [Recovering/Resolving]
  - Dysstasia [Unknown]
  - Dialysis [Not Recovered/Not Resolved]
  - Seizure [Unknown]
  - Renal disorder [Unknown]
  - Rehabilitation therapy [Unknown]
  - Pneumonia [Unknown]
  - Gait disturbance [Unknown]
  - Tremor [Unknown]
  - Hospitalisation [Unknown]

NARRATIVE: CASE EVENT DATE: 2016
